FAERS Safety Report 6828201-3 (Version None)
Quarter: 2010Q3

REPORT INFORMATION
  Report Type: 
  Country: None (occurrence: None)
  Receive Date: 20100709
  Receipt Date: 20070201
  Transmission Date: 20110219
  Serious: No
  Sender: FDA-Public Use
  Company Number: US-PFIZER INC-2007009728

PATIENT
  Age: 71 Year
  Sex: Male
  Weight: 84.82 kg

DRUGS (5)
  1. CHANTIX [Suspect]
     Indication: SMOKING CESSATION THERAPY
     Dates: start: 20070121
  2. ZOCOR [Concomitant]
  3. ZETIA [Concomitant]
  4. ZESTRIL [Concomitant]
  5. METOPROLOL [Concomitant]

REACTIONS (1)
  - ABDOMINAL DISCOMFORT [None]
